FAERS Safety Report 7009200-8 (Version None)
Quarter: 2010Q3

REPORT INFORMATION
  Report Type: 
  Country: None (occurrence: None)
  Receive Date: 20100923
  Receipt Date: 20100916
  Transmission Date: 20110219
  Serious: Yes (Hospitalization)
  Sender: FDA-Public Use
  Company Number: US-JNJFOC-20100701183

PATIENT
  Sex: Male
  Weight: 113 kg

DRUGS (3)
  1. GRIFULVIN [Suspect]
     Indication: ONYCHOMYCOSIS
     Route: 065
  2. CELEBREX [Suspect]
     Indication: PRODUCT USED FOR UNKNOWN INDICATION
     Route: 065
  3. STEROIDS NOS [Suspect]
     Indication: RENAL FAILURE
     Route: 065

REACTIONS (2)
  - BLOOD POTASSIUM DECREASED [None]
  - RENAL FAILURE [None]
